FAERS Safety Report 4281876-8 (Version None)
Quarter: 2004Q1

REPORT INFORMATION
  Report Type: 
  Country: None (occurrence: None)
  Receive Date: 20040112
  Receipt Date: 20030314
  Transmission Date: 20041129
  Serious: Yes (Hospitalization)
  Sender: FDA-Public Use
  Company Number: NSADSS2002020445

PATIENT
  Age: 64 Year
  Sex: Male
  Weight: 89 kg

DRUGS (20)
  1. REOPRO [Suspect]
     Indication: CORONARY ANGIOPLASTY
     Dosage: 17 ML, 1 IN 1 AS NECESSARY, INTRAVENOUS DRIP
     Route: 041
     Dates: start: 20020612
  2. REOPRO [Suspect]
     Indication: CORONARY ANGIOPLASTY
     Dosage: 11 ML, 1 IN 1 AS NECESSARY, INTRAVENOUS BOLUS
     Route: 040
     Dates: start: 20020612, end: 20020612
  3. HEPARIN SODIUM [Suspect]
     Indication: CORONARY ANGIOPLASTY
     Dosage: 6500 IU, 1 IN 1 AS NECESSARY, INTRAVENOUS DRIP
     Route: 041
     Dates: start: 20020612
  4. PREDNISONE [Concomitant]
  5. CYCLOSPORINE (CICLOSPORIN) TABLETS [Concomitant]
  6. CLOPIDOGREL BISULFATE [Concomitant]
  7. ACETYSALICYLIC ACID/PARACETAMOL (SAFAPRYN) [Concomitant]
  8. LOPRESSOR [Concomitant]
  9. ZOCOR [Concomitant]
  10. PROCARDIA (NIFEDIPINE) TABLETS [Concomitant]
  11. LASIX [Concomitant]
  12. PRILOSEC [Concomitant]
  13. FOLIC ACID (FOLIC ACID) TABLETS [Concomitant]
  14. FOSAMAX (ALENDRONATE SODIUM) TABLETS [Concomitant]
  15. NITROSTAT [Concomitant]
  16. MULTIVITAMIN (MULTIVITAMINS) [Concomitant]
  17. PREDNISONE [Concomitant]
  18. CALCIUM (CALCIUM) TABLETS [Concomitant]
  19. RESTORIL (TEMAZEPAM) TABLETS [Concomitant]
  20. NORVASC (AMLODIPINE BESILATE) TABLETS [Concomitant]

REACTIONS (4)
  - ANAPHYLACTIC REACTION [None]
  - HAEMORRHAGE [None]
  - PULMONARY HAEMORRHAGE [None]
  - THROMBOCYTOPENIA [None]
